FAERS Safety Report 9288393 (Version 1)
Quarter: 2013Q2

REPORT INFORMATION
  Report Type: Spontaneous
  Country: GB (occurrence: None)
  Receive Date: 20130509
  Receipt Date: 20130509
  Transmission Date: 20140414
  Serious: Yes (Other)
  Sender: FDA-Public Use
  Company Number: 2013GB0162

PATIENT
  Sex: Female

DRUGS (1)
  1. KINERET (ANAKINRA), NOT AVAILABLE [Suspect]

REACTIONS (2)
  - Abortion spontaneous [None]
  - Foetal exposure during pregnancy [None]
